FAERS Safety Report 8085652-X (Version None)
Quarter: 2012Q1

REPORT INFORMATION
  Report Type: 
  Country: None (occurrence: None)
  Receive Date: 20120128
  Receipt Date: 20110531
  Transmission Date: 20120608
  Serious: No
  Sender: FDA-Public Use
  Company Number: US-ABBOTT-11P-163-0729888-00

PATIENT
  Sex: Female
  Weight: 95.34 kg

DRUGS (6)
  1. HUMIRA [Suspect]
     Indication: PSORIATIC ARTHROPATHY
     Dates: start: 20110531
  2. TRICOR [Concomitant]
     Indication: BLOOD CHOLESTEROL INCREASED
  3. HYDROCODONE BITARTRATE [Concomitant]
     Indication: PAIN
  4. CYMBALTA [Concomitant]
     Indication: POST-TRAUMATIC STRESS DISORDER
  5. HYDROCHLOROTHIAZIDE [Concomitant]
     Indication: HYPERTENSION
  6. AMITIZA [Concomitant]
     Indication: CONSTIPATION

REACTIONS (2)
  - GAIT DISTURBANCE [None]
  - DIZZINESS [None]
